FAERS Safety Report 17848052 (Version 1)
Quarter: 2020Q2

REPORT INFORMATION
  Report Type: Report from Study
  Country: US (occurrence: US)
  Receive Date: 20200601
  Receipt Date: 20200601
  Transmission Date: 20200714
  Serious: Yes (Hospitalization, Other)
  Sender: FDA-Public Use
  Company Number: US-GILEAD-2020-0468100

PATIENT
  Age: 48 Year
  Sex: Male

DRUGS (4)
  1. TENOFOVIR ALAFENAMIDE [Suspect]
     Active Substance: TENOFOVIR ALAFENAMIDE
     Indication: HEPATITIS B
  2. TENOFOVIR ALAFENAMIDE [Suspect]
     Active Substance: TENOFOVIR ALAFENAMIDE
     Indication: HIV INFECTION
     Dosage: 25 MG, QD
     Route: 048
     Dates: start: 201803
  3. AMLOPINE [Concomitant]
     Active Substance: AMLODIPINE BESYLATE
     Dosage: 10 MG
  4. TRIVEDON [Concomitant]
     Dosage: 50 MG

REACTIONS (3)
  - Off label use [Not Recovered/Not Resolved]
  - Abscess [Unknown]
  - Spinal cord infection [Unknown]

NARRATIVE: CASE EVENT DATE: 202001
